FAERS Safety Report 13283795 (Version 1)
Quarter: 2017Q1

REPORT INFORMATION
  Report Type: Report from Study
  Country: US (occurrence: US)
  Receive Date: 20170301
  Receipt Date: 20170301
  Transmission Date: 20170428
  Serious: Yes (Death, Hospitalization)
  Sender: FDA-Public Use
  Company Number: US-ASTRAZENECA-2016SE58904

PATIENT
  Age: 26873 Day
  Sex: Female
  Weight: 40.3 kg

DRUGS (1)
  1. IRESSA [Suspect]
     Active Substance: GEFITINIB
     Indication: NON-SMALL CELL LUNG CANCER
     Route: 048
     Dates: start: 20160311

REACTIONS (6)
  - Pneumonia [Unknown]
  - Diarrhoea [Unknown]
  - Urinary tract infection [Unknown]
  - Death [Fatal]
  - Dehydration [Unknown]
  - Atrial fibrillation [Unknown]

NARRATIVE: CASE EVENT DATE: 20170222
